FAERS Safety Report 10038798 (Version 1)
Quarter: 2014Q1

REPORT INFORMATION
  Report Type: Spontaneous
  Country: US (occurrence: None)
  Receive Date: 20140306
  Receipt Date: 20140306
  Transmission Date: 20141002
  Serious: Yes (Other)
  Sender: FDA-Public Use
  Company Number: 163-21880-13052308

PATIENT
  Age: 72 Year
  Sex: Female

DRUGS (18)
  1. REVLIMID (LENALIDOMIDE) (10 MILLIGRAM, CAPSULES) [Suspect]
     Indication: MYELODYSPLASTIC SYNDROME
     Dosage: 21 IN 28 D
     Route: 048
     Dates: start: 20130418, end: 2013
  2. LUMIGAN (BIMATOPROST) (UNKNOWN) [Concomitant]
  3. OIL LEAF EXTRACT (ALL OTHER THERAPEUTIC PRODUCTS) (UNKNOWN) [Concomitant]
  4. VITAMIN E (TOCOPHEROL) [Concomitant]
  5. PROTONIX (UNKNOWN) [Concomitant]
  6. I-CAPS (ICAPS) (CAPSULES) [Concomitant]
  7. AMBIEN (ZOLPIDEM TARTRATE) (UNKNOWN) [Concomitant]
  8. CLONAZEPAM (CLONAZEPAM) (UNKNOWN) [Concomitant]
  9. WELLBUTRIN (BUPROPION HYDROCHLORIDE) (UNKNOWN) [Concomitant]
  10. ALPRAZOLAM (ALPRAZOLAM) (UNKNOWN) (ALPRAZOLAM) [Concomitant]
  11. METAMUCIL (METAMUCIL ^PROCTER + GAMBLE^) (UNKNOWN) [Concomitant]
  12. GLUCOSAMINE (GLUCOSAMINE) (TABLETS) [Concomitant]
  13. ASPIRIN (ACETYLSALICYLIC ACID) (UNKNOWN) (ACETYLSALICYLIC ACID) [Concomitant]
  14. COQ10 (UBIDECARENONE) (UNKNOWN) [Concomitant]
  15. BIOTIN (BIOTIN) (UNKNOWN) [Concomitant]
  16. CALCIUM (CALCIUM) (UNKNOWN) [Concomitant]
  17. FISH OIL (FISH OIL) (UNKNOWN) [Concomitant]
  18. VITAMIN D3 (COLECALCIFEROL) (UNKNOWN) [Concomitant]

REACTIONS (4)
  - Platelet count decreased [None]
  - Inappropriate schedule of drug administration [None]
  - Diarrhoea [None]
  - Fatigue [None]
